FAERS Safety Report 10206392 (Version 2)
Quarter: 2014Q3

REPORT INFORMATION
  Report Type: Spontaneous
  Country: JP (occurrence: JP)
  Receive Date: 20140530
  Receipt Date: 20140724
  Transmission Date: 20150326
  Serious: Yes (Death)
  Sender: FDA-Public Use
  Company Number: JP-TEVA-483470ISR

PATIENT
  Sex: Female
  Weight: 37 kg

DRUGS (11)
  1. LYRICA [Concomitant]
     Active Substance: PREGABALIN
     Indication: CANCER PAIN
     Route: 048
     Dates: start: 20140115, end: 20140410
  2. FENTOS [Concomitant]
     Active Substance: FENTANYL
     Route: 062
     Dates: start: 20140422, end: 20140427
  3. E-FEN BUCCAL [Suspect]
     Active Substance: FENTANYL CITRATE
     Dosage: DAILY DOSE: 100-200MCG
     Route: 048
     Dates: start: 20140430, end: 20140502
  4. TSUMURA DAIOKANZOTO EXTRACT GRANULES FOR ETHICAL USE [Concomitant]
     Route: 048
     Dates: start: 20140411, end: 20140502
  5. E-FEN BUCCAL [Suspect]
     Active Substance: FENTANYL CITRATE
     Indication: BREAKTHROUGH PAIN
     Dosage: DAILY DOSE: 50-200MCG
     Route: 002
     Dates: start: 20140314, end: 20140429
  6. CELECOXIB. [Concomitant]
     Active Substance: CELECOXIB
     Indication: CANCER PAIN
     Route: 048
     Dates: start: 20140115, end: 20140410
  7. CELECOXIB. [Concomitant]
     Active Substance: CELECOXIB
     Route: 048
     Dates: start: 20140411, end: 20140502
  8. TSUMURA DAIOKANZOTO EXTRACT GRANULES FOR ETHICAL USE [Concomitant]
     Indication: CONSTIPATION
     Route: 048
     Dates: start: 20140307, end: 20140410
  9. FENTOS [Concomitant]
     Active Substance: FENTANYL
     Indication: CANCER PAIN
     Route: 062
     Dates: start: 20140314, end: 20140421
  10. LYRICA [Concomitant]
     Active Substance: PREGABALIN
     Route: 048
     Dates: start: 20140411, end: 20140502
  11. FENTOS [Concomitant]
     Active Substance: FENTANYL
     Route: 062
     Dates: start: 20140428, end: 20140502

REACTIONS (1)
  - Gastric cancer [Fatal]
